FAERS Safety Report 20802497 (Version 1)
Quarter: 2022Q2

REPORT INFORMATION
  Report Type: Spontaneous
  Country: US (occurrence: None)
  Receive Date: 20220507
  Receipt Date: 20220507
  Transmission Date: 20220721
  Serious: Yes (Death)
  Sender: FDA-Public Use
  Company Number: None

PATIENT
  Age: 68 Year
  Sex: Female
  Weight: 69.75 kg

DRUGS (9)
  1. GADOBUTROL [Suspect]
     Active Substance: GADOBUTROL
  2. ATENOLOL [Concomitant]
     Active Substance: ATENOLOL
  3. FLONASE [Concomitant]
     Active Substance: FLUTICASONE PROPIONATE
  4. ADVAIR HFA [Concomitant]
     Active Substance: FLUTICASONE PROPIONATE\SALMETEROL XINAFOATE
  5. REMICADE [Concomitant]
     Active Substance: INFLIXIMAB
  6. KLOR-CON [Concomitant]
     Active Substance: POTASSIUM CHLORIDE
  7. SULINDAC [Concomitant]
     Active Substance: SULINDAC
  8. NORVASC [Concomitant]
     Active Substance: AMLODIPINE BESYLATE
  9. TYLENOL [Concomitant]
     Active Substance: ACETAMINOPHEN

REACTIONS (4)
  - Anaphylactic reaction [None]
  - Contrast media reaction [None]
  - Loss of consciousness [None]
  - Agonal respiration [None]

NARRATIVE: CASE EVENT DATE: 20220225
